FAERS Safety Report 12840106 (Version 5)
Quarter: 2018Q4

REPORT INFORMATION
  Report Type: Spontaneous
  Country: PL (occurrence: PL)
  Receive Date: 20161012
  Receipt Date: 20181018
  Transmission Date: 20190204
  Serious: Yes (Life-Threatening, Hospitalization, Other)
  Sender: FDA-Public Use
  Company Number: PL-SA-2016SA183475

PATIENT
  Age: 78 Year
  Sex: Male

DRUGS (3)
  1. ZOLPIDEM TARTRATE. [Suspect]
     Active Substance: ZOLPIDEM TARTRATE
     Indication: SUICIDE ATTEMPT
     Dosage: 10 MG, UNK (20 TABLETS) (200 MG), TOTAL
     Route: 048
  2. THEOPHYLLINE [Suspect]
     Active Substance: THEOPHYLLINE ANHYDROUS
     Indication: SUICIDE ATTEMPT
     Dosage: 4.5 G,TOTAL
     Route: 065
  3. DIGOXIN. [Interacting]
     Active Substance: DIGOXIN
     Indication: SUICIDE ATTEMPT
     Dosage: 7.5 MG,TOTAL (30DF)
     Route: 048

REACTIONS (23)
  - Suicide attempt [Unknown]
  - Hypotension [Recovering/Resolving]
  - Altered state of consciousness [Recovered/Resolved]
  - Myocardial infarction [Recovered/Resolved]
  - Laboratory test abnormal [Unknown]
  - Electrocardiogram abnormal [Unknown]
  - Restlessness [Recovering/Resolving]
  - Toxicity to various agents [Recovering/Resolving]
  - Toxicity to various agents [Recovered/Resolved]
  - General physical health deterioration [Recovering/Resolving]
  - Blood pressure increased [Recovering/Resolving]
  - Aggression [Recovering/Resolving]
  - Drug interaction [Unknown]
  - Tachycardia [Recovering/Resolving]
  - Atrioventricular block first degree [Recovering/Resolving]
  - Electrocardiogram repolarisation abnormality [Recovering/Resolving]
  - Suicidal ideation [Recovering/Resolving]
  - Ventricular arrhythmia [Recovering/Resolving]
  - Ventricular extrasystoles [Recovering/Resolving]
  - Electrocardiogram ST segment depression [Recovered/Resolved with Sequelae]
  - Intentional overdose [Recovering/Resolving]
  - Conduction disorder [Unknown]
  - Normocytic anaemia [Recovering/Resolving]
